FAERS Safety Report 4885019-9 (Version None)
Quarter: 2006Q1

REPORT INFORMATION
  Report Type: 
  Country: None (occurrence: None)
  Receive Date: 20060119
  Receipt Date: 20050325
  Transmission Date: 20060701
  Serious: Yes (Hospitalization)
  Sender: FDA-Public Use
  Company Number: US-MERCK-0503USA04978

PATIENT
  Age: 41 Year
  Sex: Male
  Weight: 80 kg

DRUGS (11)
  1. VIOXX [Suspect]
     Indication: ARTHRITIS
     Route: 048
     Dates: start: 20030101, end: 20030101
  2. VIOXX [Suspect]
     Route: 048
     Dates: start: 20040101, end: 20040701
  3. VIOXX [Suspect]
     Indication: OSTEOARTHRITIS
     Route: 048
     Dates: start: 20030101, end: 20030101
  4. VIOXX [Suspect]
     Route: 048
     Dates: start: 20040101, end: 20040701
  5. ATENOLOL [Concomitant]
     Route: 065
  6. PREVACID [Concomitant]
     Route: 065
  7. CLONIDINE [Concomitant]
     Route: 065
  8. SOMA [Concomitant]
     Route: 065
  9. NORCO [Concomitant]
     Route: 065
  10. ASPIRIN [Concomitant]
     Route: 065
  11. VITAMINS (UNSPECIFIED) [Concomitant]
     Route: 065

REACTIONS (19)
  - BRONCHITIS [None]
  - BUNDLE BRANCH BLOCK [None]
  - CHEST PAIN [None]
  - COUGH [None]
  - DEPRESSION [None]
  - DIZZINESS [None]
  - DYSPEPSIA [None]
  - HEADACHE [None]
  - HYPERTENSION [None]
  - INJURY [None]
  - NECK INJURY [None]
  - PAIN [None]
  - RESPIRATORY ARREST [None]
  - ROAD TRAFFIC ACCIDENT [None]
  - SINUS TACHYCARDIA [None]
  - STRESS [None]
  - SYNCOPE [None]
  - TENSION HEADACHE [None]
  - TRICUSPID VALVE INCOMPETENCE [None]
